FAERS Safety Report 6167170-9 (Version None)
Quarter: 2009Q2

REPORT INFORMATION
  Report Type: 
  Country: None (occurrence: None)
  Receive Date: 20090424
  Receipt Date: 20090415
  Transmission Date: 20091009
  Serious: Yes (Other)
  Sender: FDA-Public Use
  Company Number: AU-WYE-G03511309

PATIENT
  Sex: Female
  Weight: 75 kg

DRUGS (2)
  1. EFFEXOR XR [Suspect]
     Indication: DEPRESSION
     Dosage: 300MG DAILY
     Route: 048
     Dates: start: 20060811, end: 20070416
  2. IMPLANON [Concomitant]

REACTIONS (8)
  - ABNORMAL DREAMS [None]
  - DEPERSONALISATION [None]
  - DIZZINESS [None]
  - DRUG WITHDRAWAL SYNDROME [None]
  - FEELING DRUNK [None]
  - NAUSEA [None]
  - PARAESTHESIA [None]
  - SELF-INJURIOUS IDEATION [None]
